FAERS Safety Report 9090537 (Version 4)
Quarter: 2013Q1

REPORT INFORMATION
  Report Type: Spontaneous
  Country: JP (occurrence: JP)
  Receive Date: 20130131
  Receipt Date: 20130307
  Transmission Date: 20140127
  Serious: Yes (Other)
  Sender: FDA-Public Use
  Company Number: JP-BAXTER-2013BAX003534

PATIENT
  Age: 15 Year
  Sex: Female

DRUGS (4)
  1. ENDOXAN 1G [Suspect]
     Indication: SYSTEMIC LUPUS ERYTHEMATOSUS
     Route: 042
     Dates: start: 20111107, end: 20111107
  2. UROMITEXAN [Concomitant]
     Indication: PROPHYLAXIS
     Route: 042
     Dates: start: 20111107, end: 20111107
  3. PREDONINE [Concomitant]
     Indication: SYSTEMIC LUPUS ERYTHEMATOSUS
     Route: 048
     Dates: start: 20111027
  4. SODIUM CHLORIDE [Concomitant]
     Indication: PRODUCT USED FOR UNKNOWN INDICATION
     Route: 042

REACTIONS (1)
  - Atrioventricular block second degree [Recovered/Resolved]
